FAERS Safety Report 9676146 (Version 1)
Quarter: 2013Q4

REPORT INFORMATION
  Report Type: Spontaneous
  Country: US (occurrence: None)
  Receive Date: 20131105
  Receipt Date: 20131105
  Transmission Date: 20140711
  Serious: Yes (Hospitalization)
  Sender: FDA-Public Use
  Company Number: US-ZYDUS-002354

PATIENT
  Age: 3 Year
  Sex: Male

DRUGS (1)
  1. TRAMADOL (TRAMADOL) [Suspect]

REACTIONS (9)
  - Respiration abnormal [None]
  - Somnolence [None]
  - Tongue disorder [None]
  - Ataxia [None]
  - Vomiting [None]
  - Depressed level of consciousness [None]
  - Unresponsive to stimuli [None]
  - Drug screen false positive [None]
  - Gait disturbance [None]
